FAERS Safety Report 16878806 (Version 3)
Quarter: 2019Q4

REPORT INFORMATION
  Report Type: Spontaneous
  Country: US (occurrence: US)
  Receive Date: 20191002
  Receipt Date: 20191017
  Transmission Date: 20200122
  Serious: Yes (Hospitalization)
  Sender: FDA-Public Use
  Company Number: US-ALLERGAN-1939836US

PATIENT
  Sex: Female
  Weight: 81.18 kg

DRUGS (3)
  1. DELZICOL [Suspect]
     Active Substance: MESALAMINE
     Indication: COLITIS ULCERATIVE
     Dosage: UNK
     Route: 048
  2. DELZICOL [Suspect]
     Active Substance: MESALAMINE
     Dosage: 400 MG
     Dates: start: 2016, end: 2017
  3. UNSPECIFIED HEART MEDICATION [Concomitant]
     Active Substance: UNSPECIFIED INGREDIENT
     Indication: PALPITATIONS
     Route: 048

REACTIONS (7)
  - Blood pressure abnormal [Recovered/Resolved]
  - Dehydration [Recovered/Resolved]
  - Pain [Recovered/Resolved]
  - Vomiting [Not Recovered/Not Resolved]
  - Large intestinal ulcer haemorrhage [Unknown]
  - Muscle spasms [Recovered/Resolved]
  - Abdominal pain [Not Recovered/Not Resolved]
